FAERS Safety Report 13243764 (Version 1)
Quarter: 2017Q1

REPORT INFORMATION
  Report Type: Report from Study
  Country: FR (occurrence: FR)
  Receive Date: 20170217
  Receipt Date: 20170217
  Transmission Date: 20170428
  Serious: Yes (Hospitalization, Disabling)
  Sender: FDA-Public Use
  Company Number: FR-PFIZER INC-2011185523

PATIENT
  Age: 56 Year
  Sex: Male

DRUGS (2)
  1. CYTARABINE. [Suspect]
     Active Substance: CYTARABINE
     Indication: ACUTE MYELOID LEUKAEMIA
     Dosage: 385 MG, 1X/DAY
     Route: 042
     Dates: start: 20110505, end: 20110511
  2. CERUBIDINE [Suspect]
     Active Substance: DAUNORUBICIN HYDROCHLORIDE
     Indication: ACUTE MYELOID LEUKAEMIA
     Dosage: 115 MG, 1X/DAY
     Route: 042
     Dates: start: 20110505, end: 20110507

REACTIONS (2)
  - Pneumonia [Recovered/Resolved]
  - Postoperative thoracic procedure complication [Recovered/Resolved with Sequelae]

NARRATIVE: CASE EVENT DATE: 20110531
